FAERS Safety Report 15993143 (Version 1)
Quarter: 2019Q1

REPORT INFORMATION
  Report Type: Spontaneous
  Country: DE (occurrence: DE)
  Receive Date: 20190221
  Receipt Date: 20190221
  Transmission Date: 20190418
  Serious: Yes (Other)
  Sender: FDA-Public Use
  Company Number: DE-AUROBINDO-AUR-APL-2019-008644

PATIENT

DRUGS (3)
  1. MIRTAZAPINE PUREN 15 MG FILM-COATED TABLETS [Suspect]
     Active Substance: MIRTAZAPINE
     Dosage: 7.5 MILLIGRAM, DAILY
     Route: 048
  2. MIRTAZAPINE PUREN 15 MG FILM-COATED TABLETS [Suspect]
     Active Substance: MIRTAZAPINE
     Indication: PRODUCT USED FOR UNKNOWN INDICATION
     Dosage: 7.5 MILLIGRAM, DAILY
     Route: 048
     Dates: start: 20190115
  3. MIRTAZAPINE PUREN 15 MG FILM-COATED TABLETS [Suspect]
     Active Substance: MIRTAZAPINE
     Dosage: 15 MILLIGRAM, DAILY
     Route: 048

REACTIONS (14)
  - Decreased appetite [Not Recovered/Not Resolved]
  - Generalised oedema [Not Recovered/Not Resolved]
  - Constipation [Not Recovered/Not Resolved]
  - Nausea [Not Recovered/Not Resolved]
  - Musculoskeletal pain [Not Recovered/Not Resolved]
  - Dry mouth [Not Recovered/Not Resolved]
  - Weight increased [Not Recovered/Not Resolved]
  - Fatigue [Not Recovered/Not Resolved]
  - Hallucination, visual [Not Recovered/Not Resolved]
  - Dizziness [Not Recovered/Not Resolved]
  - Headache [Not Recovered/Not Resolved]
  - Depressed level of consciousness [Not Recovered/Not Resolved]
  - Somnolence [Not Recovered/Not Resolved]
  - Hypoaesthesia [Not Recovered/Not Resolved]

NARRATIVE: CASE EVENT DATE: 20190116
